FAERS Safety Report 4307966-9 (Version None)
Quarter: 2004Q1

REPORT INFORMATION
  Report Type: 
  Country: None (occurrence: None)
  Receive Date: 20040301
  Receipt Date: 20030210
  Transmission Date: 20041129
  Serious: No
  Sender: FDA-Public Use
  Company Number: US-BRISTOL-MYERS SQUIBB COMPANY-12181889

PATIENT
  Age: 30 Year
  Sex: Female
  Weight: 66 kg

DRUGS (2)
  1. GLUCOPHAGE [Suspect]
     Indication: POLYCYSTIC OVARIES
  2. SYNTHROID [Concomitant]

REACTIONS (2)
  - CHILLS [None]
  - URTICARIA [None]
